FAERS Safety Report 5727434-7 (Version None)
Quarter: 2008Q2

REPORT INFORMATION
  Report Type: 
  Country: None (occurrence: None)
  Receive Date: 20080505
  Receipt Date: 20080424
  Transmission Date: 20081010
  Serious: Yes (Life-Threatening, Other)
  Sender: FDA-Public Use
  Company Number: GB-AVENTIS-200813795GDDC

PATIENT
  Age: 66 Year
  Sex: Male
  Weight: 69 kg

DRUGS (7)
  1. TAXOTERE [Suspect]
     Route: 042
     Dates: start: 20080410, end: 20080410
  2. DEXAMETHASONE [Concomitant]
     Indication: PROPHYLAXIS
     Route: 048
     Dates: start: 20080409
  3. DIFLUCAN [Concomitant]
     Route: 048
     Dates: start: 20080320, end: 20080326
  4. METFORMIN HCL [Concomitant]
     Route: 048
  5. ONDANSETRON [Concomitant]
     Indication: PROPHYLAXIS
  6. CHLORPHENIRAMINE MALEATE [Concomitant]
     Indication: PROPHYLAXIS
     Route: 042
  7. ZOFRAN [Concomitant]
     Indication: ANTIEMETIC SUPPORTIVE CARE
     Route: 048
     Dates: start: 20080320, end: 20080322

REACTIONS (3)
  - BRADYCARDIA [None]
  - FLUSHING [None]
  - HYPERTENSION [None]
